FAERS Safety Report 8322946-4 (Version None)
Quarter: 2012Q2

REPORT INFORMATION
  Report Type: 
  Country: None (occurrence: None)
  Receive Date: 20120430
  Receipt Date: 20120425
  Transmission Date: 20120825
  Serious: Yes (Life-Threatening)
  Sender: FDA-Public Use
  Company Number: IE-ASTRAZENECA-2012SE21241

PATIENT
  Age: 28362 Day
  Sex: Female

DRUGS (15)
  1. FRESUBIN [Concomitant]
  2. VIMOVO [Suspect]
     Route: 048
     Dates: start: 20120305, end: 20120322
  3. PREGABALIN [Concomitant]
  4. VIMOVO [Suspect]
     Indication: RHEUMATOID ARTHRITIS
     Route: 048
     Dates: start: 20120220
  5. WARFARIN SODIUM [Suspect]
     Indication: AORTIC VALVE REPLACEMENT
     Route: 048
     Dates: end: 20120305
  6. ETOFENAMATE [Concomitant]
     Dosage: 1 APPLICATION TWO TIMES A DAY
  7. LACTULOSE [Concomitant]
     Dosage: 3.5 G/ 5 ML, 10 ML AS REQUIRED TWO TIMES A DAY
  8. OXYCODONE HYDROCHLORIDE [Concomitant]
  9. FYBOGEL CITRUS [Concomitant]
     Dosage: 1 SACHET-NOCTE DAILY
  10. WARFANT [Concomitant]
     Dosage: 2 TABS- 6PM DAILY
  11. LEVOTHYROXINE SODIUM [Concomitant]
  12. PANTOPRAZOLE [Concomitant]
  13. BISOPROLOL FUMARATE [Concomitant]
  14. WARFARIN SODIUM [Suspect]
     Dosage: AT LOWER DOSE
     Route: 048
     Dates: start: 20120312, end: 20120322
  15. ACETAMINOPHEN [Concomitant]
     Dosage: 2 TABS- AS REQUIRED ONCE/ 4 HOURS

REACTIONS (1)
  - INTERNATIONAL NORMALISED RATIO INCREASED [None]
